FAERS Safety Report 25446443 (Version 1)
Quarter: 2025Q2

REPORT INFORMATION
  Report Type: Spontaneous
  Country: US (occurrence: None)
  Receive Date: 20250617
  Receipt Date: 20250617
  Transmission Date: 20250717
  Serious: Yes (Life-Threatening, Hospitalization)
  Sender: FDA-CTU
  Company Number: None

PATIENT
  Age: 88 Year
  Sex: Female
  Weight: 92 kg

DRUGS (2)
  1. TAFINLAR [Suspect]
     Active Substance: DABRAFENIB MESYLATE
     Indication: Metastatic malignant melanoma
     Dosage: 150 MG TWICE A DAY ORAL
     Route: 048
     Dates: start: 20250520, end: 20250602
  2. MEKINIST [Suspect]
     Active Substance: TRAMETINIB DIMETHYL SULFOXIDE
     Dosage: 2 MG DAILY ORAL
     Route: 048
     Dates: start: 20250520, end: 20250602

REACTIONS (3)
  - Pyrexia [None]
  - Asthenia [None]
  - Drug eruption [None]

NARRATIVE: CASE EVENT DATE: 20250603
